FAERS Safety Report 5149478-9 (Version None)
Quarter: 2006Q4

REPORT INFORMATION
  Report Type: 
  Country: None (occurrence: None)
  Receive Date: 20061113
  Receipt Date: 20060201
  Transmission Date: 20070319
  Serious: No
  Sender: FDA-Public Use
  Company Number: 2006S1000084

PATIENT
  Age: 75 Year
  Sex: Female

DRUGS (1)
  1. COREG [Suspect]
     Indication: DRUG USE FOR UNKNOWN INDICATION

REACTIONS (2)
  - DIZZINESS [None]
  - MALAISE [None]
